FAERS Safety Report 23067277 (Version 1)
Quarter: 2023Q4

REPORT INFORMATION
  Report Type: Spontaneous
  Country: NL (occurrence: NL)
  Receive Date: 20231016
  Receipt Date: 20231016
  Transmission Date: 20240110
  Serious: Yes (Death, Other)
  Sender: FDA-Public Use
  Company Number: NL-AMGEN-NLDSP2023181513

PATIENT

DRUGS (12)
  1. TRASTUZUMAB [Suspect]
     Active Substance: TRASTUZUMAB
     Indication: Metastases to adrenals
     Dosage: UNK
     Route: 065
  2. PEMBROLIZUMAB [Concomitant]
     Active Substance: PEMBROLIZUMAB
     Route: 065
  3. CARBOPLATIN [Concomitant]
     Active Substance: CARBOPLATIN
     Route: 065
  4. CISPLATIN [Concomitant]
     Active Substance: CISPLATIN
     Route: 065
  5. PEMETREXED [Concomitant]
     Active Substance: PEMETREXED
     Route: 065
  6. NIVOLUMAB [Concomitant]
     Active Substance: NIVOLUMAB
     Route: 065
  7. DURVALUMAB [Concomitant]
     Active Substance: DURVALUMAB
     Route: 065
  8. ENCORAFENIB [Concomitant]
     Active Substance: ENCORAFENIB
     Route: 065
  9. AFATINIB [Concomitant]
     Active Substance: AFATINIB
     Route: 065
  10. OSIMERTINIB [Concomitant]
     Active Substance: OSIMERTINIB
     Route: 065
  11. GEFITINIB [Concomitant]
     Active Substance: GEFITINIB
     Route: 065
  12. ATEZOLIZUMAB [Concomitant]
     Active Substance: ATEZOLIZUMAB
     Route: 065

REACTIONS (4)
  - Death [Fatal]
  - Metastases to adrenals [Unknown]
  - Therapy partial responder [Unknown]
  - Off label use [Unknown]
